FAERS Safety Report 11119423 (Version 1)
Quarter: 2015Q2

REPORT INFORMATION
  Report Type: Spontaneous
  Country: GB (occurrence: GB)
  Receive Date: 20150518
  Receipt Date: 20150518
  Transmission Date: 20150821
  Serious: Yes (Hospitalization)
  Sender: FDA-Public Use
  Company Number: GB-CIPLA LTD.-2015GB03819

PATIENT

DRUGS (16)
  1. CITALOPRAM [Suspect]
     Active Substance: CITALOPRAM HYDROBROMIDE
     Dosage: 8 GTT, QD, MORNING, 40 MG/ML ORAL DROPS
     Route: 048
  2. SODIUM VALPROATE [Concomitant]
     Active Substance: VALPROATE SODIUM
     Dosage: 1400 MG, QD, 600MG IN THE MORNING 200MG LUNCH AND 600MG NIGHT. 200MG/5ML
  3. ONDANSETRON [Suspect]
     Active Substance: ONDANSETRON
     Dosage: 4 MG, TID
  4. RAMIPRIL. [Concomitant]
     Active Substance: RAMIPRIL
     Dosage: 5 MG, QD, MORNING
  5. NEFOPAM [Concomitant]
     Active Substance: NEFOPAM
     Dosage: 30 MG, TID
  6. DOCUSATE SODIUM. [Concomitant]
     Active Substance: DOCUSATE SODIUM
     Dosage: 200 MG, QD, NIGHTLY
  7. MULTIVITAMIN [Concomitant]
     Active Substance: VITAMINS
     Dosage: 1 DF, QD, EACH MORNING
  8. CLENIL MODULITE [Concomitant]
     Active Substance: BECLOMETHASONE DIPROPIONATE
     Dosage: 2 DF, PRN
     Route: 055
  9. FEXOFENADINE [Concomitant]
     Active Substance: FEXOFENADINE\FEXOFENADINE HYDROCHLORIDE
     Dosage: 180 MG, QD, MORNING
  10. METFORMIN [Concomitant]
     Active Substance: METFORMIN HYDROCHLORIDE
     Dosage: 500 MG, BID, 500MG/5ML
  11. MIRTAZAINE [Concomitant]
     Dosage: 45 MG, QD, NIGHTLY
  12. SALBUTAMOL [Concomitant]
     Active Substance: ALBUTEROL
     Dosage: 2 DF, PRN, AS NECESSARY
     Route: 055
  13. PRUCALOPRIDE [Suspect]
     Active Substance: PRUCALOPRIDE
     Dosage: 2 MG, QD, MORNING
  14. FESOTERODINE [Concomitant]
     Active Substance: FESOTERODINE
     Dosage: 4 MG, QD, MORNING
  15. LANSOPRAZOLE. [Concomitant]
     Active Substance: LANSOPRAZOLE
     Dosage: 30 MG, QD, MORNING
  16. ABILIFY [Concomitant]
     Active Substance: ARIPIPRAZOLE
     Dosage: 10 MG, QD, MORNING

REACTIONS (5)
  - Fall [Unknown]
  - Nausea [Unknown]
  - Decreased appetite [Unknown]
  - Vomiting [Unknown]
  - Electrocardiogram QT prolonged [Unknown]
